FAERS Safety Report 15692826 (Version 3)
Quarter: 2019Q1

REPORT INFORMATION
  Report Type: Report from Study
  Country: US (occurrence: US)
  Receive Date: 20181206
  Receipt Date: 20190201
  Transmission Date: 20190417
  Serious: Yes (Other)
  Sender: FDA-Public Use
  Company Number: US-TEVA-2018-US-983136

PATIENT
  Sex: Female

DRUGS (4)
  1. CLARAVIS [Suspect]
     Active Substance: ISOTRETINOIN
  2. CLARAVIS [Suspect]
     Active Substance: ISOTRETINOIN
     Dates: start: 20171031
  3. CLARAVIS [Suspect]
     Active Substance: ISOTRETINOIN
  4. CLARAVIS [Suspect]
     Active Substance: ISOTRETINOIN
     Dates: start: 20181019

REACTIONS (1)
  - Unintended pregnancy [Unknown]
